FAERS Safety Report 11740561 (Version 2)
Quarter: 2015Q4

REPORT INFORMATION
  Report Type: Spontaneous
  Country: US (occurrence: US)
  Receive Date: 20151110
  Receipt Date: 20151120
  Transmission Date: 20160304
  Serious: No
  Sender: FDA-Public Use
  Company Number: US-ELI_LILLY_AND_COMPANY-US201201003197

PATIENT
  Age: 77 Year
  Sex: Female

DRUGS (6)
  1. FORTEO [Suspect]
     Active Substance: TERIPARATIDE
     Dosage: 20 UG, QD
     Route: 065
     Dates: end: 20120624
  2. FORTEO [Suspect]
     Active Substance: TERIPARATIDE
     Indication: OSTEOPOROSIS
     Dosage: 20 UG, QD
     Route: 065
  3. FORTEO [Suspect]
     Active Substance: TERIPARATIDE
     Dosage: 20 UG, QD
     Route: 065
  4. FORTEO [Suspect]
     Active Substance: TERIPARATIDE
     Dosage: 20 UG, QD
     Route: 065
     Dates: end: 20120211
  5. FORTEO [Suspect]
     Active Substance: TERIPARATIDE
     Dosage: 20 UG, QD
     Dates: start: 20120630
  6. FORTEO [Suspect]
     Active Substance: TERIPARATIDE
     Dosage: 20 UG, QD
     Dates: end: 201208

REACTIONS (18)
  - Gait disturbance [Unknown]
  - Pain in extremity [Not Recovered/Not Resolved]
  - Osteoporosis [Unknown]
  - Injection site bruising [Recovered/Resolved]
  - Confusional state [Unknown]
  - Scoliosis [Unknown]
  - Intentional product misuse [Recovered/Resolved]
  - Arthritis [Unknown]
  - Adverse event [Unknown]
  - Limb asymmetry [Unknown]
  - Limb discomfort [Not Recovered/Not Resolved]
  - Contusion [Unknown]
  - Nausea [Unknown]
  - Drug administered at inappropriate site [Unknown]
  - Muscle spasms [Recovered/Resolved]
  - Arthropathy [Unknown]
  - Spider vein [Unknown]
  - Injection site pain [Unknown]

NARRATIVE: CASE EVENT DATE: 20120624
